FAERS Safety Report 10340151 (Version 4)
Quarter: 2014Q4

REPORT INFORMATION
  Report Type: Report from Study
  Country: CA (occurrence: CA)
  Receive Date: 20140724
  Receipt Date: 20141201
  Transmission Date: 20150528
  Serious: Yes (Hospitalization, Other)
  Sender: FDA-Public Use
  Company Number: CA-BAYER-2014-088319

PATIENT
  Age: 74 Year
  Sex: Female

DRUGS (11)
  1. XARELTO [Concomitant]
     Active Substance: RIVAROXABAN
  2. STIVARGA [Suspect]
     Active Substance: REGORAFENIB
     Indication: COLORECTAL CANCER METASTATIC
     Dosage: 160 MG, QD
     Route: 048
     Dates: start: 20140611, end: 2014
  3. ACETAMINOPHEN. [Concomitant]
     Active Substance: ACETAMINOPHEN
     Dosage: 1000 MG DAILY
  4. AMLODIPINE [Concomitant]
     Active Substance: AMLODIPINE BESYLATE
     Dosage: 10 MG DAILY
  5. PERINDOPRIL [Concomitant]
     Active Substance: PERINDOPRIL
     Dosage: 8 MG DAILY
  6. SENOKOT [SENNOSIDE A+B] [Concomitant]
     Dosage: 17.2 MG DAILY
  7. METFORMIN [Concomitant]
     Active Substance: METFORMIN HYDROCHLORIDE
     Dosage: 250 MG DAILY
  8. AMLODIPINE [Concomitant]
     Active Substance: AMLODIPINE BESYLATE
     Dosage: 5 MG
  9. LEVOTHYROXIN [Concomitant]
     Active Substance: LEVOTHYROXINE
     Dosage: 0.1 MG DAILY
  10. STIVARGA [Suspect]
     Active Substance: REGORAFENIB
     Indication: COLORECTAL CANCER METASTATIC
     Dosage: 120 MG, QD (FOR 3 WEEKS AND ONE WEEK OF)
     Route: 048
     Dates: start: 201409, end: 2014
  11. ENTERIC ASPIRIN [Concomitant]
     Active Substance: ASPIRIN
     Dosage: 81 MG DAILY

REACTIONS (13)
  - Cardiac failure congestive [None]
  - Pain in extremity [None]
  - Hypertension [Unknown]
  - Appetite disorder [Not Recovered/Not Resolved]
  - Blood glucose decreased [Unknown]
  - Hypertension [Recovering/Resolving]
  - Cardiac disorder [None]
  - Hyperkeratosis [Not Recovered/Not Resolved]
  - Dizziness [Not Recovered/Not Resolved]
  - Balance disorder [Recovering/Resolving]
  - Peripheral swelling [Not Recovered/Not Resolved]
  - Constipation [Not Recovered/Not Resolved]
  - Therapeutic product ineffective [None]

NARRATIVE: CASE EVENT DATE: 2014
